FAERS Safety Report 8300122-9 (Version None)
Quarter: 2012Q2

REPORT INFORMATION
  Report Type: 
  Country: None (occurrence: None)
  Receive Date: 20120420
  Receipt Date: 20120413
  Transmission Date: 20120825
  Serious: No
  Sender: FDA-Public Use
  Company Number: US-PFIZER INC-2012051022

PATIENT
  Sex: Female

DRUGS (2)
  1. PERCOCET [Suspect]
     Indication: ANALGESIC THERAPY
     Dosage: UNK, (ONE DOSE)
     Route: 048
     Dates: start: 20111101, end: 20111101
  2. POTASSIUM PENICILLIN G [Suspect]
     Dosage: UNK

REACTIONS (2)
  - DRUG HYPERSENSITIVITY [None]
  - SWOLLEN TONGUE [None]
